FAERS Safety Report 10767397 (Version 1)
Quarter: 2015Q1

REPORT INFORMATION
  Report Type: Spontaneous
  Country: FR (occurrence: FR)
  Receive Date: 20150205
  Receipt Date: 20150205
  Transmission Date: 20150721
  Serious: Yes (Other)
  Sender: FDA-Public Use
  Company Number: FR-MYLANLABS-2015M1003126

PATIENT

DRUGS (2)
  1. LIDOCAINE. [Suspect]
     Active Substance: LIDOCAINE
     Dosage: 1% LIDOCAINE 3ML, USED TO DILUTE THE ERTAPENEM DOSE
     Route: 058
  2. ERTAPENEM [Suspect]
     Active Substance: ERTAPENEM
     Indication: URINARY TRACT INFECTION
     Dosage: 1G OR 500MG PER DAY, DILUTED IN 1% LIDOCAINE 3ML
     Route: 058

REACTIONS (1)
  - Skin necrosis [Recovered/Resolved]
